FAERS Safety Report 22000822 (Version 1)
Quarter: 2023Q1

REPORT INFORMATION
  Report Type: Spontaneous
  Country: IN (occurrence: IN)
  Receive Date: 20230216
  Receipt Date: 20230216
  Transmission Date: 20230417
  Serious: Yes (Other)
  Sender: FDA-Public Use
  Company Number: IN-PFIZER INC-202101761148

PATIENT
  Age: 64 Year
  Sex: Female
  Weight: 73.7 kg

DRUGS (5)
  1. PALBOCICLIB [Suspect]
     Active Substance: PALBOCICLIB
     Dosage: 125 MG, CYCLIC (1 TABLET ONCE DAILY 3 WEEKS ON 1 WEEK OFF)
     Route: 048
     Dates: start: 20211116
  2. FEMARA [Concomitant]
     Active Substance: LETROZOLE
     Dosage: 2.5 MG, 1X/DAY
     Dates: start: 20211116
  3. CALCIUM\CHOLECALCIFEROL [Concomitant]
     Active Substance: CALCIUM\CHOLECALCIFEROL
     Dosage: 500 MG, 1X/DAY
  4. D RISE [Concomitant]
     Dosage: 60000 (ILLEGIBLE) ONCE A MONTH X 3 MONTHS
  5. ZOLEDRONIC [Concomitant]
     Active Substance: ZOLEDRONIC ACID
     Dosage: ONCE IN 3 MONTHS

REACTIONS (13)
  - Diabetes mellitus [Unknown]
  - Insomnia [Unknown]
  - Dyspepsia [Unknown]
  - Hypotension [Unknown]
  - Neck pain [Unknown]
  - Neoplasm progression [Unknown]
  - White blood cell count decreased [Unknown]
  - Blood cholesterol increased [Unknown]
  - Blood triglycerides increased [Unknown]
  - Very low density lipoprotein increased [Unknown]
  - Low density lipoprotein increased [Unknown]
  - Total cholesterol/HDL ratio increased [Unknown]
  - Blood alkaline phosphatase increased [Unknown]

NARRATIVE: CASE EVENT DATE: 20210101
